FAERS Safety Report 25347059 (Version 2)
Quarter: 2025Q2

REPORT INFORMATION
  Report Type: Spontaneous
  Country: US (occurrence: US)
  Receive Date: 20250522
  Receipt Date: 20250522
  Transmission Date: 20250716
  Serious: No
  Sender: GALDERMA
  Company Number: US-GALDERMA-US2025003778

PATIENT

DRUGS (2)
  1. DIFFERIN [Suspect]
     Active Substance: ADAPALENE
     Indication: Acne
     Route: 061
     Dates: start: 20250211
  2. DIFFERIN [Suspect]
     Active Substance: ADAPALENE
     Route: 061
     Dates: end: 20250221

REACTIONS (4)
  - Rash [Recovered/Resolved]
  - Hypersensitivity [Recovered/Resolved]
  - Skin abrasion [Recovered/Resolved]
  - Drug ineffective [Unknown]

NARRATIVE: CASE EVENT DATE: 20250201
